FAERS Safety Report 5885247-X (Version None)
Quarter: 2008Q3

REPORT INFORMATION
  Report Type: 
  Country: None (occurrence: None)
  Receive Date: 20080912
  Receipt Date: 20080830
  Transmission Date: 20090109
  Serious: Yes (Other)
  Sender: FDA-Public Use
  Company Number: 238297J08USA

PATIENT
  Age: 75 Year
  Sex: Male
  Weight: 74.3899 kg

DRUGS (5)
  1. REBIF [Suspect]
     Indication: MULTIPLE SCLEROSIS
     Dosage: 44 MCG, 3 IN 1 WEEKS, SUBCUTANEOUS
     Route: 058
     Dates: start: 20070117
  2. PROZAC [Concomitant]
  3. BACLOFEN [Concomitant]
  4. PROVIGIL [Concomitant]
  5. AMBIEN [Concomitant]

REACTIONS (4)
  - CONDITION AGGRAVATED [None]
  - DISCOMFORT [None]
  - HERNIA [None]
  - TESTICULAR DISORDER [None]
